FAERS Safety Report 6982792-0 (Version None)
Quarter: 2010Q3

REPORT INFORMATION
  Report Type: 
  Country: None (occurrence: None)
  Receive Date: 20100914
  Receipt Date: 20100329
  Transmission Date: 20110219
  Serious: No
  Sender: FDA-Public Use
  Company Number: US-PFIZER INC-2010044619

PATIENT
  Sex: Male
  Weight: 81.633 kg

DRUGS (7)
  1. LYRICA [Suspect]
     Indication: FIBROMYALGIA
     Dosage: 50 MG, 3X/DAY
     Dates: start: 20091101, end: 20100101
  2. LYRICA [Suspect]
     Dosage: 100 MG, 3X/DAY
  3. SPIRONOLACTONE [Suspect]
     Indication: BLOOD PRESSURE
     Dosage: 25 MG, 1X/DAY
  4. SPIRONOLACTONE [Suspect]
     Dosage: 50 MG, 1X/DAY
  5. AMLODIPINE BESILATE [Concomitant]
     Indication: BLOOD PRESSURE
     Dosage: 5 MG, 1X/DAY
  6. XANAX [Concomitant]
     Indication: MUSCLE SPASMS
     Dosage: 1 MG, 1X/DAY
  7. OXYCODONE [Concomitant]
     Indication: PAIN MANAGEMENT
     Dosage: 325 MG, 2X/DAY
     Dates: end: 20100319

REACTIONS (2)
  - PRURITUS [None]
  - URTICARIA [None]
